FAERS Safety Report 4545824-5 (Version None)
Quarter: 2005Q1

REPORT INFORMATION
  Report Type: 
  Country: None (occurrence: None)
  Receive Date: 20050105
  Receipt Date: 20050105
  Transmission Date: 20050727
  Serious: Yes (Other)
  Sender: FDA-Public Use
  Company Number: None

PATIENT
  Age: 6 Year
  Sex: Male
  Weight: 24.9 kg

DRUGS (1)
  1. STRATTERA [Suspect]
     Indication: ATTENTION DEFICIT/HYPERACTIVITY DISORDER
     Dosage: CAP 1 BID PO
     Route: 048
     Dates: start: 20040901, end: 20041201

REACTIONS (2)
  - ABDOMINAL PAIN UPPER [None]
  - DECREASED APPETITE [None]
